FAERS Safety Report 8589482-1 (Version None)
Quarter: 2012Q3

REPORT INFORMATION
  Report Type: 
  Country: None (occurrence: None)
  Receive Date: 20120731
  Receipt Date: 20120718
  Transmission Date: 20120928
  Serious: Yes (Death)
  Sender: FDA-Public Use
  Company Number: MC 201200459

PATIENT
  Sex: Male

DRUGS (1)
  1. ANGIOMAX [Suspect]
     Indication: PERCUTANEOUS CORONARY INTERVENTION
     Dosage: BOLUS, INTRAVENOUS
     Route: 040

REACTIONS (4)
  - HYPERSENSITIVITY [None]
  - MOUTH HAEMORRHAGE [None]
  - BLOOD PRESSURE DECREASED [None]
  - HEART RATE DECREASED [None]
